FAERS Safety Report 5676269-2 (Version None)
Quarter: 2008Q1

REPORT INFORMATION
  Report Type: 
  Country: None (occurrence: None)
  Receive Date: 20080321
  Receipt Date: 20080317
  Transmission Date: 20080703
  Serious: Yes (Other)
  Sender: FDA-Public Use
  Company Number: ES-BOEHRINGER INGELHEIM GMBH, GERMANY-2008-BP-03951RO

PATIENT
  Age: 16 Year
  Sex: Female

DRUGS (10)
  1. CYCLOPHOSPHAMIDE [Suspect]
     Indication: FOCAL GLOMERULOSCLEROSIS
     Route: 042
     Dates: start: 20020601
  2. CYCLOPHOSPHAMIDE [Suspect]
     Dates: start: 20041201
  3. PREDNISONE TAB [Suspect]
     Indication: SYSTEMIC LUPUS ERYTHEMATOSUS
     Route: 048
     Dates: start: 20011101
  4. AZATHIOPRINE TABLETS USP, 50 MG [Suspect]
     Indication: SYSTEMIC LUPUS ERYTHEMATOSUS
     Dates: start: 20011101
  5. MYCOPHENOLATE MOFETIL [Suspect]
     Dates: start: 20021201
  6. MYCOPHENOLATE MOFETIL [Suspect]
     Dates: start: 20050601
  7. RITUXIMAB [Suspect]
     Indication: ANTIPHOSPHOLIPID SYNDROME
     Dates: end: 20050501
  8. RITUXIMAB [Suspect]
     Indication: LUPUS NEPHRITIS
  9. HEPARIN [Concomitant]
  10. GAMMAGLOBULINS [Concomitant]
     Indication: STEVENS-JOHNSON SYNDROME

REACTIONS (6)
  - ANTIPHOSPHOLIPID SYNDROME [None]
  - ARTERIAL THROMBOSIS [None]
  - FOCAL GLOMERULOSCLEROSIS [None]
  - MYOCARDITIS [None]
  - PROTEINURIA [None]
  - STEVENS-JOHNSON SYNDROME [None]
